FAERS Safety Report 25742311 (Version 2)
Quarter: 2025Q3

REPORT INFORMATION
  Report Type: Spontaneous
  Country: CN (occurrence: CN)
  Receive Date: 20250829
  Receipt Date: 20250908
  Transmission Date: 20251020
  Serious: Yes (Other)
  Sender: RIGEL PHARMACEUTICALS
  Company Number: CN-RIGEL Pharmaceutical, INC-20250800119

PATIENT
  Sex: Male

DRUGS (5)
  1. GAVRETO [Suspect]
     Active Substance: PRALSETINIB
     Indication: Non-small cell lung cancer metastatic
     Dosage: 200 MG, QD
     Route: 048
     Dates: start: 2024
  2. GAVRETO [Suspect]
     Active Substance: PRALSETINIB
     Dosage: 300 MILLIGRAM, QD
     Route: 048
  3. GAVRETO [Suspect]
     Active Substance: PRALSETINIB
     Dosage: 400 MILLIGRAM, QD
     Route: 048
  4. GAVRETO [Suspect]
     Active Substance: PRALSETINIB
     Dosage: 3 OR 4 CAPSULES, QD
     Route: 048
     Dates: start: 202502, end: 20250826
  5. DENOSUMAB [Suspect]
     Active Substance: DENOSUMAB
     Indication: Musculoskeletal disorder prophylaxis

REACTIONS (9)
  - Carcinoembryonic antigen increased [Recovering/Resolving]
  - Product use complaint [Recovered/Resolved]
  - Intentional product use issue [Unknown]
  - Toothache [Unknown]
  - Defaecation disorder [Recovering/Resolving]
  - Nausea [Recovered/Resolved]
  - Diarrhoea [Recovered/Resolved]
  - Rash [Unknown]
  - Blood albumin decreased [Recovering/Resolving]

NARRATIVE: CASE EVENT DATE: 20250201
